FAERS Safety Report 7102247-2 (Version None)
Quarter: 2010Q4

REPORT INFORMATION
  Report Type: 
  Country: None (occurrence: None)
  Receive Date: 20101115
  Receipt Date: 20101102
  Transmission Date: 20110411
  Serious: No
  Sender: FDA-Public Use
  Company Number: US-BIOGENIDEC-2010BI038682

PATIENT
  Sex: Female

DRUGS (2)
  1. TYSABRI [Suspect]
     Indication: MULTIPLE SCLEROSIS
     Route: 042
     Dates: start: 20071017, end: 20080721
  2. TYSABRI [Suspect]
     Route: 042
     Dates: start: 20100325

REACTIONS (4)
  - ALOPECIA [None]
  - COORDINATION ABNORMAL [None]
  - DRUG INEFFECTIVE [None]
  - PAIN [None]
